FAERS Safety Report 21259256 (Version 1)
Quarter: 2022Q3

REPORT INFORMATION
  Report Type: Spontaneous
  Country: US (occurrence: None)
  Receive Date: 20220825
  Receipt Date: 20220825
  Transmission Date: 20221026
  Serious: No
  Sender: FDA-Public Use
  Company Number: None

PATIENT
  Age: 62 Year
  Sex: Female
  Weight: 56.25 kg

DRUGS (3)
  1. XIIDRA [Suspect]
     Active Substance: LIFITEGRAST
     Indication: Dry eye
     Dosage: OTHER QUANTITY : 1 DROP(S);?FREQUENCY : TWICE A DAY;?
     Route: 047
     Dates: start: 20220809
  2. TAMOXIFEN [Concomitant]
     Active Substance: TAMOXIFEN
  3. TYRVAYA [Concomitant]
     Active Substance: VARENICLINE TARTRATE

REACTIONS (2)
  - Eye pain [None]
  - Vision blurred [None]

NARRATIVE: CASE EVENT DATE: 20220811
